FAERS Safety Report 4863215-4 (Version None)
Quarter: 2005Q4

REPORT INFORMATION
  Report Type: 
  Country: None (occurrence: None)
  Receive Date: 20051219
  Receipt Date: 20051108
  Transmission Date: 20060501
  Serious: Yes (Death)
  Sender: FDA-Public Use
  Company Number: MK200512-0225-1

PATIENT
  Age: 20 Year

DRUGS (2)
  1. MEPERIDINE HCL [Suspect]
     Dates: start: 20040101
  2. COCAINE [Suspect]
     Dates: start: 20040101

REACTIONS (2)
  - DRUG ABUSER [None]
  - INCORRECT ROUTE OF DRUG ADMINISTRATION [None]
